FAERS Safety Report 20871665 (Version 2)
Quarter: 2022Q2

REPORT INFORMATION
  Report Type: Spontaneous
  Country: TW (occurrence: TW)
  Receive Date: 20220525
  Receipt Date: 20220630
  Transmission Date: 20220721
  Serious: Yes (Other)
  Sender: FDA-Public Use
  Company Number: TW-BAYER-2022A072388

PATIENT
  Age: 71 Year
  Sex: Male

DRUGS (8)
  1. EYLEA [Suspect]
     Active Substance: AFLIBERCEPT
     Indication: Polypoidal choroidal vasculopathy
     Dosage: UNK, ONCE, FORMULATION: SOLUTION FOR INJECTION
     Route: 031
     Dates: start: 20201217, end: 20201217
  2. EYLEA [Suspect]
     Active Substance: AFLIBERCEPT
     Dosage: UNK, ONCE, FORMULATION: SOLUTION FOR INJECTION
     Route: 031
     Dates: start: 20210121, end: 20210121
  3. EYLEA [Suspect]
     Active Substance: AFLIBERCEPT
     Dosage: UNK, ONCE, FORMULATION: SOLUTION FOR INJECTION
     Route: 031
     Dates: start: 20210218, end: 20210218
  4. EYLEA [Suspect]
     Active Substance: AFLIBERCEPT
     Dosage: UNK, ONCE, SOLUTION FOR INJECTION
     Route: 031
     Dates: start: 20210407, end: 20210407
  5. EYLEA [Suspect]
     Active Substance: AFLIBERCEPT
     Dosage: UNK, ONCE, FORMULATION: SOLUTION FOR INJECTION
     Route: 031
     Dates: start: 20210505, end: 20210505
  6. EYLEA [Suspect]
     Active Substance: AFLIBERCEPT
     Dosage: UNK, ONCE, FORMULATION: SOLUTION FOR INJECTION
     Route: 031
     Dates: start: 20210630, end: 20210630
  7. EYLEA [Suspect]
     Active Substance: AFLIBERCEPT
     Dosage: UNK, ONCE, FORMULATION: SOLUTION FOR INJECTION
     Route: 031
     Dates: start: 20210908, end: 20210908
  8. EYLEA [Suspect]
     Active Substance: AFLIBERCEPT
     Dosage: UNK, ONCE, FORMULATION: SOLUTION FOR INJECTION
     Route: 031
     Dates: start: 20220225, end: 20220225

REACTIONS (2)
  - Blindness unilateral [Recovered/Resolved]
  - Off label use [Unknown]

NARRATIVE: CASE EVENT DATE: 20201217
